FAERS Safety Report 7341678-2 (Version None)
Quarter: 2011Q1

REPORT INFORMATION
  Report Type: 
  Country: None (occurrence: None)
  Receive Date: 20110309
  Receipt Date: 20110303
  Transmission Date: 20110831
  Serious: Yes (Hospitalization, Other)
  Sender: FDA-Public Use
  Company Number: US-PFIZER INC-2010176042

PATIENT
  Sex: Male
  Weight: 102 kg

DRUGS (43)
  1. ZOSYN [Suspect]
     Indication: DEVICE RELATED INFECTION
     Dosage: 3.375 G, EVERY 8 HRS
     Route: 042
     Dates: start: 20101207, end: 20101209
  2. MIDAZOLAM [Concomitant]
     Dosage: 3 MG, SINGLE
     Route: 042
     Dates: start: 20101208, end: 20101208
  3. TRAZODONE [Concomitant]
     Dosage: 50 MG, SINGLE
     Route: 048
     Dates: start: 20101130, end: 20101130
  4. ENALAPRIL MALEATE [Concomitant]
     Dosage: UNK
     Dates: end: 20101124
  5. CEFAZOLIN [Concomitant]
     Dosage: 1 G, Q8 HRS
     Route: 042
     Dates: start: 20101201, end: 20101204
  6. SHOHL'S SOLUTION [Concomitant]
     Dosage: 60 ML, SINGLE
     Route: 048
     Dates: start: 20101207, end: 20101207
  7. FERROUS SULFATE [Concomitant]
     Dosage: 325 MG, 3X/DAY
     Route: 048
     Dates: start: 20101129, end: 20101202
  8. POTASSIUM CHLORIDE [Concomitant]
     Dosage: 10-40 MEQ  X1 PRN
     Route: 042
     Dates: start: 20101203
  9. INSULIN [Concomitant]
     Dosage: REGULAR SLIDING SCALE PRN
     Dates: start: 20101205
  10. BACLOFEN [Concomitant]
     Indication: BACK PAIN
     Dosage: 5 MG, AS NEEDED
     Route: 048
     Dates: start: 20101127, end: 20101204
  11. TOBRAMYCIN [Concomitant]
     Dosage: 400 MG, SINGLE
     Route: 042
     Dates: start: 20101129, end: 20101129
  12. WARFARIN [Concomitant]
     Dosage: 5 MG, 1X/DAY
     Route: 048
     Dates: start: 20101130, end: 20101202
  13. LORAZEPAM [Concomitant]
     Dosage: 0.5 MG- 1 MG Q 24 HOURS
     Route: 042
     Dates: start: 20101127, end: 20101205
  14. METRONIDAZOLE [Concomitant]
     Dosage: 500 MG, IV OR PO Q 8 H
     Dates: start: 20101203, end: 20101206
  15. VANCOMYCIN [Concomitant]
     Dosage: 1000-1250 MG Q8-24HRS
     Route: 042
     Dates: start: 20101129, end: 20101201
  16. PSYLLIUM [Concomitant]
     Dosage: 1 PKT  TID BEFORE MEALS
     Route: 048
     Dates: start: 20101208, end: 20101209
  17. TPN [Concomitant]
     Dosage: UNK
  18. TRAMADOL [Concomitant]
     Indication: PAIN
     Dosage: 50 MG, Q 6 HOURS AS NEEDED
     Route: 048
     Dates: start: 20101130, end: 20101205
  19. ATAZANAVIR [Concomitant]
     Dosage: UNK
     Dates: end: 20101124
  20. EMTRICITABINE/TENOFOVIR DISOPROXIL FUMARATE [Concomitant]
     Dosage: UNK
     Dates: end: 20101124
  21. LOPERAMIDE [Concomitant]
     Dosage: 2-4 MG
     Route: 048
     Dates: start: 20101206
  22. VANCOMYCIN [Concomitant]
     Dosage: 125 MG, Q 6 HOURS
     Route: 048
     Dates: start: 20101204
  23. ZOLPIDEM [Concomitant]
     Dosage: 10 MG, Q HS
     Route: 048
     Dates: start: 20101202, end: 20101207
  24. FAMOTIDINE [Concomitant]
     Dosage: 20 MG, 1X/DAY
     Route: 048
     Dates: start: 20101126, end: 20101128
  25. ZOSYN [Suspect]
     Indication: PYREXIA
  26. DIVALPROEX SODIUM [Concomitant]
     Dosage: 500 MG, 2X/DAY
     Route: 048
     Dates: start: 20101126, end: 20101210
  27. ONDANSETRON [Concomitant]
     Dosage: 4 MG, EVERY 4 HRS
     Route: 042
     Dates: start: 20101204, end: 20101210
  28. CEFEPIME [Concomitant]
     Dosage: 2 G, Q 8 HOURS
     Route: 042
     Dates: start: 20101128, end: 20101129
  29. POTASSIUM PHOSPHATE [Concomitant]
     Dosage: 40 MEQ, X 1 AS NEEDED
     Route: 048
     Dates: start: 20101208
  30. PREDNISONE [Concomitant]
     Dosage: 60 MG, 1X/DAY
     Route: 048
     Dates: start: 20101210
  31. HEPARIN [Concomitant]
     Dosage: 5000 IU, Q 8 HOURS
     Route: 058
     Dates: start: 20101126, end: 20101129
  32. VITAMIN K TAB [Concomitant]
     Dosage: UNK
  33. MAGNESIUM SULFATE [Concomitant]
     Dosage: 1-4 GM X 1 PRN
     Route: 042
     Dates: start: 20101128
  34. PHYTONADIONE [Concomitant]
     Dosage: 5-10 MGIV OR PO X1 PRN
     Dates: start: 20101206, end: 20101208
  35. HEPARIN [Concomitant]
     Dosage: UNK
     Route: 041
     Dates: start: 20101130, end: 20101203
  36. VANCOMYCIN [Concomitant]
     Dosage: 1000-1250 MG Q8-24HRS
     Route: 042
     Dates: start: 20101204
  37. TYLENOL [Concomitant]
     Indication: PYREXIA
     Dosage: 325-500 MG Q4 HR
     Route: 048
     Dates: start: 20101128
  38. DALTEPARIN SODIUM [Concomitant]
     Dosage: 18000 IU, SINGLE
     Route: 058
     Dates: start: 20101208, end: 20101208
  39. EMOLLIENTS AND PROTECTIVES [Concomitant]
     Dosage: UNK
     Route: 061
     Dates: start: 20101207, end: 20101207
  40. FENTANYL [Concomitant]
     Dosage: 50 UG, SINGLE
     Route: 042
     Dates: start: 20101208, end: 20101208
  41. FILGRASTIM [Concomitant]
     Dosage: 480 UG, 1X/DAY
     Route: 058
     Dates: start: 20101128, end: 20101201
  42. GENTAMICIN [Concomitant]
     Dosage: 420 MG, SINGLE
     Route: 042
     Dates: start: 20101128, end: 20101128
  43. PREDNISONE [Concomitant]
     Dosage: 60 MG, 1X/DAY
     Route: 048
     Dates: start: 20101125, end: 20101129

REACTIONS (6)
  - PYREXIA [None]
  - HYPOTENSION [None]
  - EOSINOPHILIA [None]
  - RASH [None]
  - SWELLING FACE [None]
  - URTICARIA [None]
